FAERS Safety Report 7482920-7 (Version None)
Quarter: 2011Q2

REPORT INFORMATION
  Report Type: 
  Country: None (occurrence: None)
  Receive Date: 20110516
  Receipt Date: 20110208
  Transmission Date: 20111010
  Serious: No
  Sender: FDA-Public Use
  Company Number: US-BAYER-2011-015106

PATIENT
  Age: 32 Year
  Sex: Male
  Weight: 82 kg

DRUGS (3)
  1. RITALIN [Concomitant]
  2. CELEXA [Concomitant]
  3. ALEVE (CAPLET) [Suspect]
     Dosage: BOTTLE COUNT 24S
     Route: 048
     Dates: start: 20110208

REACTIONS (1)
  - NO ADVERSE EVENT [None]
